FAERS Safety Report 19471976 (Version 13)
Quarter: 2022Q4

REPORT INFORMATION
  Report Type: Spontaneous
  Country: GB (occurrence: GB)
  Receive Date: 20210629
  Receipt Date: 20221004
  Transmission Date: 20230113
  Serious: Yes (Death, Other)
  Sender: FDA-Public Use
  Company Number: None

PATIENT
  Age: 39 Year
  Sex: Male
  Weight: 91 kg

DRUGS (49)
  1. MORPHINE SULFATE [Interacting]
     Active Substance: MORPHINE SULFATE
     Indication: Product used for unknown indication
     Dosage: UNK, (OVERDOSE, MEDICATION ERROR, MISUSE, ABUSE, OFF LABEL USE SMORPHINE-CNS-OPIOID)
     Route: 065
  2. MORPHINE SULFATE [Interacting]
     Active Substance: MORPHINE SULFATE
     Dosage: UNK, (OVERDOSE, MEDICATION ERROR, MISUSE, ABUSE, OFF LABEL USE SMORPHINE-CNS-OPIOID)
     Route: 065
  3. PREGABALIN [Interacting]
     Active Substance: PREGABALIN
     Indication: Product used for unknown indication
     Dosage: S-PREGABALIN-CNS-NON BENZO CNS DEPRESSANT
     Route: 065
     Dates: start: 20181027
  4. PREGABALIN [Interacting]
     Active Substance: PREGABALIN
     Dosage: (CAPSULE S-PREGABALIN-CNS-NON BENZO CNS DEPRESSANT)
     Route: 065
  5. PREGABALIN [Interacting]
     Active Substance: PREGABALIN
     Dosage: UNK (CAPSULE)
     Route: 065
     Dates: start: 20181027, end: 20181027
  6. PREGABALIN [Interacting]
     Active Substance: PREGABALIN
     Dosage: UNK (CAPSULE)
     Route: 065
     Dates: start: 20181027
  7. ALCOHOL [Interacting]
     Active Substance: ALCOHOL
     Indication: Product used for unknown indication
     Dosage: UNK
     Route: 065
  8. ALCOHOL [Interacting]
     Active Substance: ALCOHOL
     Dosage: UNK
     Route: 065
  9. BUPRENORPHINE [Interacting]
     Active Substance: BUPRENORPHINE
     Indication: Drug rehabilitation
     Dosage: UNK
     Route: 065
     Dates: start: 20181027, end: 20181027
  10. BUPRENORPHINE [Interacting]
     Active Substance: BUPRENORPHINE
     Indication: Drug dependence
     Dosage: UNK
     Route: 065
     Dates: start: 20180127
  11. BUPRENORPHINE [Interacting]
     Active Substance: BUPRENORPHINE
     Dosage: OVERDOSE, MEDICATION ERROR, MISUSE, ABUSE, OFF LABEL USE
     Route: 065
     Dates: start: 20181027
  12. BUPRENORPHINE [Interacting]
     Active Substance: BUPRENORPHINE
     Dosage: OVERDOSE, MEDICATION ERROR, MISUSE, ABUSE, OFF LABEL USE
     Route: 065
  13. BUPRENORPHINE [Interacting]
     Active Substance: BUPRENORPHINE
     Dosage: OVERDOSE, MEDICATION ERROR, MISUSE, ABUSE, OFF LABEL USE
     Route: 065
  14. COCAINE [Suspect]
     Active Substance: COCAINE
     Indication: Drug rehabilitation
     Dosage: UNK
     Route: 065
  15. COCAINE [Suspect]
     Active Substance: COCAINE
     Indication: Product used for unknown indication
     Dosage: MISUSE, ABUSE, MEDICATION ERROR, OVERDOSE, OFF LABEL USE
     Route: 065
  16. CODEINE [Interacting]
     Active Substance: CODEINE
     Indication: Product used for unknown indication
     Dosage: UNK, OVERDOSE, MEDICATION ERROR, MISUSE, ABUSE, OFF LABEL USESCODEINE-CNS-OPI
     Route: 065
  17. CODEINE [Interacting]
     Active Substance: CODEINE
     Dosage: UNK, OVERDOSE, MEDICATION ERROR, MISUSE, ABUSE, OFF LABEL USESCODEINE-CNS-OPI
     Route: 065
  18. CODEINE [Interacting]
     Active Substance: CODEINE
     Dosage: UNK, MISUSE, ABUSE, MEDICATION ERROR, OVERDOSE, OFF LABEL  USES-CODEINE-C...
     Route: 065
  19. DIAZEPAM [Interacting]
     Active Substance: DIAZEPAM
     Indication: Product used for unknown indication
     Dosage: OVERDOSE, MEDICATION ERROR, MISUSE, ABUSE, OFF LABEL USESDIAZEPAM-CNS-BENZODIAZ
     Route: 065
  20. DIAZEPAM [Interacting]
     Active Substance: DIAZEPAM
     Dosage: MISUSE, ABUSE, MEDICATION ERROR, OVERDOSE, OFF LABEL
     Route: 065
  21. ALCOHOL [Interacting]
     Active Substance: ALCOHOL
     Indication: Product used for unknown indication
     Dosage: S-ALCOHOL-CNS-ALCOHOL
     Route: 065
  22. HEROIN [Suspect]
     Active Substance: DIAMORPHINE
     Indication: Drug rehabilitation
     Dosage: UNK
     Route: 065
     Dates: start: 20180127
  23. HEROIN [Suspect]
     Active Substance: DIAMORPHINE
     Indication: Drug dependence
     Dosage: UNK
     Route: 065
  24. HEROIN [Suspect]
     Active Substance: DIAMORPHINE
     Dosage: UNK
     Route: 065
  25. ALPRAZOLAM [Concomitant]
     Active Substance: ALPRAZOLAM
     Indication: Product used for unknown indication
     Dosage: UNK, C-ALPRAZOLAM-CNS-BENZODIAZEPINE
     Route: 065
  26. ALPRAZOLAM [Concomitant]
     Active Substance: ALPRAZOLAM
     Dosage: UNK, C-ALPRAZOLAM-CNS-BENZODIAZEPINE
     Route: 065
  27. CAFFEINE [Concomitant]
     Active Substance: CAFFEINE
     Indication: Product used for unknown indication
     Dosage: UNK
     Route: 065
  28. CAFFEINE [Concomitant]
     Active Substance: CAFFEINE
     Dosage: UNK
     Route: 065
  29. DABIGATRAN [Concomitant]
     Active Substance: DABIGATRAN
     Indication: Product used for unknown indication
     Dosage: UNK
     Route: 065
  30. DABIGATRAN [Concomitant]
     Active Substance: DABIGATRAN
     Dosage: UNK
     Route: 065
  31. NICOTINE [Concomitant]
     Active Substance: NICOTINE
     Indication: Product used for unknown indication
     Dosage: UNK
     Route: 065
  32. NOSCAPINE [Concomitant]
     Active Substance: NOSCAPINE
     Indication: Product used for unknown indication
     Dosage: UNK
     Route: 065
  33. NOSCAPINE [Concomitant]
     Active Substance: NOSCAPINE
     Dosage: UNK
     Route: 065
  34. PAPAVERINE [Concomitant]
     Active Substance: PAPAVERINE
     Indication: Product used for unknown indication
     Dosage: UNK
     Route: 065
  35. PAPAVERINE [Concomitant]
     Active Substance: PAPAVERINE
     Dosage: UNK
     Route: 065
  36. ACETAMINOPHEN [Concomitant]
     Active Substance: ACETAMINOPHEN
     Indication: Product used for unknown indication
     Dosage: UNK
     Route: 065
  37. ACETAMINOPHEN [Concomitant]
     Active Substance: ACETAMINOPHEN
     Dosage: UNK
     Route: 065
  38. PROPRANOLOL [Concomitant]
     Active Substance: PROPRANOLOL HYDROCHLORIDE
     Indication: Product used for unknown indication
     Dosage: UNK
     Route: 065
  39. PROPRANOLOL [Concomitant]
     Active Substance: PROPRANOLOL HYDROCHLORIDE
     Dosage: UNK
     Route: 065
  40. TEGRETOL [Concomitant]
     Active Substance: CARBAMAZEPINE
     Indication: Product used for unknown indication
     Dosage: UNK
     Route: 065
  41. TEGRETOL [Concomitant]
     Active Substance: CARBAMAZEPINE
     Dosage: UNK
     Route: 065
  42. TEGRETOL [Concomitant]
     Active Substance: CARBAMAZEPINE
     Dosage: UNK
     Route: 065
  43. TEGRETOL [Concomitant]
     Active Substance: CARBAMAZEPINE
     Dosage: UNK
     Route: 065
  44. TEGRETOL [Concomitant]
     Active Substance: CARBAMAZEPINE
     Dosage: UNK
     Route: 065
  45. TEGRETOL [Concomitant]
     Active Substance: CARBAMAZEPINE
     Dosage: UNK
     Route: 065
  46. TEGRETOL [Concomitant]
     Active Substance: CARBAMAZEPINE
     Dosage: UNK, C-TEGRETOL-CNS-NON-BENZO CNS DEPRESSANT
     Route: 065
  47. TEGRETOL [Concomitant]
     Active Substance: CARBAMAZEPINE
     Dosage: UNK, C-TEGRETOL-CNS-NON-BENZO CNS DEPRESSANT
     Route: 065
  48. TRAZODONE [Concomitant]
     Active Substance: TRAZODONE HYDROCHLORIDE
     Indication: Product used for unknown indication
     Dosage: UNK, C-TRAZODONE-CNS-NON-BENZO CNS DEPRESSANT
     Route: 065
  49. TRAZODONE [Concomitant]
     Active Substance: TRAZODONE HYDROCHLORIDE
     Dosage: UNK, C-TRAZODONE-CNS-NON-BENZO CNS DEPRESSANT
     Route: 065

REACTIONS (7)
  - Alcohol interaction [Fatal]
  - Drug interaction [Fatal]
  - Intentional product misuse [Fatal]
  - Overdose [Fatal]
  - Off label use [Fatal]
  - Product use in unapproved indication [Fatal]
  - Toxicity to various agents [Fatal]

NARRATIVE: CASE EVENT DATE: 20181027
